FAERS Safety Report 8356567-4 (Version None)
Quarter: 2012Q2

REPORT INFORMATION
  Report Type: 
  Country: None (occurrence: None)
  Receive Date: 20120514
  Receipt Date: 20120507
  Transmission Date: 20120825
  Serious: Yes (Hospitalization)
  Sender: FDA-Public Use
  Company Number: PHBS2006JP16686

PATIENT
  Age: 57 Year
  Sex: Male

DRUGS (12)
  1. PREDNISOLONE [Concomitant]
     Dosage: 30 MG/ DAY
     Route: 048
  2. CELESTAMINE TAB [Concomitant]
     Indication: PEMPHIGOID
     Dosage: UNK UKN, UNK
     Route: 048
  3. NEORAL [Suspect]
     Dosage: 300 MG, QD
     Route: 048
     Dates: start: 20050101, end: 20050101
  4. PREDNISOLONE [Concomitant]
     Indication: PEMPHIGOID
     Dosage: 30 MG, DAILY
     Route: 048
     Dates: start: 20050823
  5. PREDNISOLONE [Concomitant]
     Dosage: 50 MG, DAILY
     Route: 048
     Dates: start: 20050830
  6. PREDNISOLONE [Concomitant]
     Dosage: 60 MG/DAY
     Route: 048
     Dates: start: 20050101
  7. PREDNISOLONE [Concomitant]
     Dosage: 5 MG/ KG
     Route: 048
  8. METHYLPREDNISOLONE [Concomitant]
     Indication: PEMPHIGOID
     Dosage: 1000 MG, UNK
     Route: 065
  9. NEORAL [Suspect]
     Dosage: 200 MG, QD
     Route: 048
     Dates: start: 20050101, end: 20060305
  10. PREDNISOLONE [Concomitant]
     Dosage: 27.5 MG/DAY
     Route: 048
  11. NEORAL [Suspect]
     Indication: PEMPHIGOID
     Dosage: 200 MG, QD
     Route: 048
     Dates: start: 20050101, end: 20050101
  12. PREDNISOLONE [Concomitant]
     Dosage: 30 MG/DAY
     Route: 048

REACTIONS (10)
  - DIARRHOEA [None]
  - IMMUNOSUPPRESSANT DRUG LEVEL DECREASED [None]
  - PEMPHIGOID [None]
  - RASH [None]
  - ERYTHEMA [None]
  - PRURITUS [None]
  - ABDOMINAL PAIN [None]
  - PANCREATITIS ACUTE [None]
  - EOSINOPHIL COUNT INCREASED [None]
  - HEPATIC FUNCTION ABNORMAL [None]
